FAERS Safety Report 19766616 (Version 1)
Quarter: 2021Q3

REPORT INFORMATION
  Report Type: Spontaneous
  Country: AU (occurrence: AU)
  Receive Date: 20210830
  Receipt Date: 20210830
  Transmission Date: 20211014
  Serious: Yes (Death, Hospitalization, Other)
  Sender: FDA-Public Use
  Company Number: NVSC2021AU170964

PATIENT
  Age: 68 Year
  Sex: Male

DRUGS (1)
  1. KYMRIAH [Suspect]
     Active Substance: TISAGENLECLEUCEL
     Indication: DIFFUSE LARGE B-CELL LYMPHOMA
     Dosage: UNK
     Route: 041
     Dates: start: 20210728, end: 20210728

REACTIONS (14)
  - Depressed level of consciousness [Recovered/Resolved]
  - Confusional state [Recovered/Resolved]
  - Cerebral small vessel ischaemic disease [Recovered/Resolved]
  - Malignant neoplasm progression [Fatal]
  - Cytokine release syndrome [Recovered/Resolved]
  - Blood pressure systolic decreased [Recovered/Resolved]
  - Diffuse large B-cell lymphoma [Fatal]
  - Oxygen saturation decreased [Recovered/Resolved]
  - Disorientation [Recovered/Resolved]
  - Myoclonus [Recovered/Resolved]
  - Cerebral disorder [Recovered/Resolved]
  - Out of specification test results [Unknown]
  - Immune effector cell-associated neurotoxicity syndrome [Recovered/Resolved]
  - Dysgraphia [Recovered/Resolved]

NARRATIVE: CASE EVENT DATE: 20210804
